FAERS Safety Report 7146014-2 (Version None)
Quarter: 2010Q4

REPORT INFORMATION
  Report Type: 
  Country: None (occurrence: None)
  Receive Date: 20101208
  Receipt Date: 20101129
  Transmission Date: 20110411
  Serious: Yes (Hospitalization)
  Sender: FDA-Public Use
  Company Number: CA-JNJFOC-20101200821

PATIENT
  Sex: Female
  Weight: 111 kg

DRUGS (13)
  1. REMICADE [Suspect]
     Indication: COLITIS ULCERATIVE
     Route: 042
  2. REMICADE [Suspect]
     Indication: CROHN'S DISEASE
     Route: 042
  3. WARFARIN SODIUM [Concomitant]
  4. IRON [Concomitant]
  5. FOLIC ACID [Concomitant]
  6. DILTIAZEM CD [Concomitant]
  7. HYDRA-ZIDE [Concomitant]
  8. RANITIDINE [Concomitant]
  9. M.V.I. [Concomitant]
  10. MICRO-K [Concomitant]
  11. METOPROLOL [Concomitant]
  12. LIPITOR [Concomitant]
  13. PREDNISONE [Concomitant]

REACTIONS (2)
  - GASTROINTESTINAL HAEMORRHAGE [None]
  - HAEMOGLOBIN DECREASED [None]
